FAERS Safety Report 8611543-9 (Version None)
Quarter: 2012Q3

REPORT INFORMATION
  Report Type: 
  Country: None (occurrence: None)
  Receive Date: 20120822
  Receipt Date: 20120813
  Transmission Date: 20120928
  Serious: Yes (Hospitalization)
  Sender: FDA-Public Use
  Company Number: PHEH2011US08346

PATIENT
  Sex: Female

DRUGS (3)
  1. PRISTIQ [Concomitant]
     Dosage: UNK UKN, UNK
  2. GILENYA [Suspect]
     Indication: RELAPSING-REMITTING MULTIPLE SCLEROSIS
     Dosage: 0.5 MG, QOD
     Route: 048
     Dates: start: 20110622
  3. TRAZODONE HYDROCHLORIDE [Concomitant]
     Dosage: UNK UKN, UNK

REACTIONS (5)
  - OEDEMA PERIPHERAL [None]
  - SWELLING [None]
  - INAPPROPRIATE SCHEDULE OF DRUG ADMINISTRATION [None]
  - SWELLING FACE [None]
  - JOINT SWELLING [None]
